FAERS Safety Report 24130233 (Version 1)
Quarter: 2024Q3

REPORT INFORMATION
  Report Type: Spontaneous
  Country: US (occurrence: US)
  Receive Date: 20240724
  Receipt Date: 20240724
  Transmission Date: 20241017
  Serious: No
  Sender: STEMLINE THERAPEUTICS
  Company Number: US-Stemline Therapeutics, Inc.-2024ST003490

PATIENT
  Age: 56 Year
  Sex: Female

DRUGS (3)
  1. ORSERDU [Suspect]
     Active Substance: ELACESTRANT
     Indication: Product used for unknown indication
     Dosage: 1 TABLET
     Route: 048
     Dates: start: 20240528
  2. One Daily Multivitamin Adult Oral T [Concomitant]
     Indication: Product used for unknown indication
     Dosage: ONE DAILY ADULT ORAL T
     Route: 048
  3. Calcium-Magnesium Oral Tablet [Concomitant]
     Indication: Product used for unknown indication
     Dosage: ORAL TABLET
     Route: 048

REACTIONS (2)
  - Joint swelling [Not Recovered/Not Resolved]
  - Peripheral swelling [Not Recovered/Not Resolved]

NARRATIVE: CASE EVENT DATE: 20240601
